FAERS Safety Report 22063861 (Version 1)
Quarter: 2023Q1

REPORT INFORMATION
  Report Type: Spontaneous
  Country: US (occurrence: None)
  Receive Date: 20230303
  Receipt Date: 20230303
  Transmission Date: 20230418
  Serious: No
  Sender: FDA-Public Use
  Company Number: None

PATIENT
  Age: 77 Year
  Sex: Female
  Weight: 102.5 kg

DRUGS (15)
  1. ABIRATERONE [Suspect]
     Active Substance: ABIRATERONE
     Indication: Prostate cancer
     Dosage: FREQUENCY : DAILY;?
     Route: 048
     Dates: start: 20230207
  2. ABIRATERONE ACETATE [Concomitant]
  3. AMLODIPINE [Concomitant]
  4. ATORVASTATIN [Concomitant]
  5. CALCIUM CARBONATE\VITAMIN D [Concomitant]
     Active Substance: CALCIUM CARBONATE\VITAMIN D
  6. COENZYME Q10 [Concomitant]
     Active Substance: DIETARY SUPPLEMENT\UBIDECARENONE
  7. ELIGARD [Concomitant]
  8. FLUTICASONE (NASAL) [Concomitant]
  9. HYDROCHLOROTHIAZIDE [Concomitant]
  10. LEVOTHYROXINE [Concomitant]
  11. MELOXICAM [Concomitant]
  12. MULTIVITAMINS/FLUORIDE (WITH ADE) [Concomitant]
  13. XGEVA [Concomitant]
  14. VITAMIN B12 [Concomitant]
  15. VITAMIN D3 [Concomitant]

REACTIONS (3)
  - Fatigue [None]
  - Arthralgia [None]
  - Palpitations [None]
